FAERS Safety Report 7672757-8 (Version None)
Quarter: 2011Q3

REPORT INFORMATION
  Report Type: 
  Country: None (occurrence: None)
  Receive Date: 20110809
  Receipt Date: 20110801
  Transmission Date: 20111222
  Serious: Yes (Death)
  Sender: FDA-Public Use
  Company Number: GB-JNJFOC-20110310999

PATIENT
  Sex: Male
  Weight: 59 kg

DRUGS (3)
  1. METHOTREXATE [Concomitant]
     Dates: start: 20021215
  2. REMICADE [Suspect]
     Indication: RHEUMATOID ARTHRITIS
     Route: 042
     Dates: start: 20020615, end: 20021129
  3. HYDROXYCHLOROQUINE [Concomitant]
     Dates: start: 20040315

REACTIONS (3)
  - CHOLECYSTITIS [None]
  - CARDIAC FAILURE CONGESTIVE [None]
  - MYELODYSPLASTIC SYNDROME [None]
